FAERS Safety Report 7221076-2 (Version None)
Quarter: 2011Q1

REPORT INFORMATION
  Report Type: 
  Country: None (occurrence: None)
  Receive Date: 20110112
  Receipt Date: 20110104
  Transmission Date: 20110831
  Serious: No
  Sender: FDA-Public Use
  Company Number: US-PFIZER INC-2011001731

PATIENT

DRUGS (3)
  1. NORVASC [Suspect]
     Dosage: 10 MG DAILY
  2. NORVASC [Suspect]
     Dosage: 5 MG DAILY
  3. HYDROCHLOROTHIAZIDE [Suspect]
     Dosage: UNK

REACTIONS (1)
  - MUSCLE SPASMS [None]
